FAERS Safety Report 13152349 (Version 7)
Quarter: 2017Q4

REPORT INFORMATION
  Report Type: Report from Study
  Country: US (occurrence: US)
  Receive Date: 20170125
  Receipt Date: 20171106
  Transmission Date: 20180320
  Serious: Yes (Hospitalization, Other)
  Sender: FDA-Public Use
  Company Number: US-SAOL THERAPEUTICS-2017SAO00067

PATIENT
  Age: 41 Year
  Sex: Female
  Weight: 77.55 kg

DRUGS (22)
  1. TRAZODONE [Concomitant]
     Active Substance: TRAZODONE HYDROCHLORIDE
     Dosage: 150 MG, 1X/DAY
     Route: 048
  2. CLONAZEPAM. [Concomitant]
     Active Substance: CLONAZEPAM
     Dosage: 1 MG, 2X/DAY
     Route: 048
  3. VITAMIN B12 WITH FOLIC ACID [Concomitant]
     Dosage: 1 TABLETS, 1X/DAY
     Route: 048
  4. COMPOUNDED BACLOFEN [Suspect]
     Active Substance: BACLOFEN
     Indication: MUSCLE SPASTICITY
     Dosage: 102.46 ?G, \DAY
     Route: 037
  5. COLACE [Concomitant]
     Active Substance: DOCUSATE SODIUM
     Dosage: 50 MG, 1X/DAY
     Route: 048
  6. ACETAMINOPHEN / CODEINE #3 [Concomitant]
  7. MORPHINE [Suspect]
     Active Substance: MORPHINE
     Dosage: 2.97 ?G, \DAY
     Route: 037
     Dates: start: 20160520
  8. LIORESAL [Suspect]
     Active Substance: BACLOFEN
     Dosage: 93.07 ?G, \DAY
     Route: 037
     Dates: start: 20160316
  9. MIDODRINE [Concomitant]
     Active Substance: MIDODRINE
     Dosage: 5 MG, 3X/DAY
  10. MORPHINE [Suspect]
     Active Substance: MORPHINE
     Dosage: 93.07 ?G, \DAY
     Route: 037
     Dates: start: 20160316
  11. LIORESAL [Suspect]
     Active Substance: BACLOFEN
     Indication: MUSCLE SPASTICITY
     Dosage: 84.63 ?G, \DAY
     Route: 037
     Dates: start: 20150622, end: 20150714
  12. HYDROXYPROPYL BETADEX [Concomitant]
     Dosage: UNK, 1X/MONTH
     Route: 030
  13. PROTONIX [Concomitant]
     Active Substance: PANTOPRAZOLE SODIUM
     Dosage: 40 MG, 1X/DAY
     Route: 048
  14. LIORESAL [Suspect]
     Active Substance: BACLOFEN
     Dosage: 102.46 ?G, \DAY
     Route: 037
     Dates: start: 20160316
  15. NEURONTIN [Concomitant]
     Active Substance: GABAPENTIN
     Dosage: 300 MG, 2X/DAY
     Route: 048
  16. DOCUSATE SODIUM. [Concomitant]
     Active Substance: DOCUSATE SODIUM
     Dosage: 100 MG, 1X/DAY
     Route: 048
  17. VITAMIN D3 [Concomitant]
     Active Substance: CHOLECALCIFEROL
     Dosage: 1000 IU, 1X/DAY
     Route: 048
  18. EFFEXOR XR [Concomitant]
     Active Substance: VENLAFAXINE HYDROCHLORIDE
     Dosage: 150 MG, 1X/DAY
     Route: 048
  19. NORCO [Concomitant]
     Active Substance: ACETAMINOPHEN\HYDROCODONE BITARTRATE
     Dosage: 1 UNK, 4X/DAY
     Route: 048
  20. MORPHINE [Suspect]
     Active Substance: MORPHINE
     Dosage: 102.46 ?G, \DAY
     Route: 037
     Dates: start: 20160316
  21. LIORESAL [Suspect]
     Active Substance: BACLOFEN
     Dosage: 2.97 ?G, \DAY
     Route: 037
     Dates: start: 20160520
  22. DEPAKOTE [Concomitant]
     Active Substance: DIVALPROEX SODIUM
     Dosage: 1000 MG, 1X/DAY
     Route: 048

REACTIONS (17)
  - Anaemia [Recovered/Resolved]
  - Back pain [Recovered/Resolved]
  - Urinary tract infection [Recovered/Resolved]
  - Pain [Recovered/Resolved]
  - Arthralgia [Unknown]
  - Sepsis [Recovered/Resolved]
  - Paraesthesia [Unknown]
  - Hypoaesthesia [Unknown]
  - Cardiac arrest [Recovered/Resolved]
  - Blood glucose increased [Unknown]
  - Device failure [Recovered/Resolved]
  - Neck pain [Recovered/Resolved]
  - Fatigue [Unknown]
  - Muscle spasms [Recovered/Resolved]
  - Constipation [Unknown]
  - Device malfunction [Recovered/Resolved]
  - Pain in extremity [Recovered/Resolved]

NARRATIVE: CASE EVENT DATE: 20160317
